FAERS Safety Report 10133172 (Version 1)
Quarter: 2014Q2

REPORT INFORMATION
  Report Type: Spontaneous
  Country: US (occurrence: US)
  Receive Date: 20140428
  Receipt Date: 20140428
  Transmission Date: 20141212
  Serious: No
  Sender: FDA-Public Use
  Company Number: US-PFIZER INC-2014115762

PATIENT
  Sex: Male

DRUGS (2)
  1. CHANTIX [Suspect]
     Indication: SMOKING CESSATION THERAPY
     Dosage: 0.5 MG, 1X/DAY
     Route: 048
     Dates: start: 201404, end: 201404
  2. CHANTIX [Suspect]
     Dosage: INCREASED DOSE
     Route: 048
     Dates: start: 201404

REACTIONS (4)
  - Malaise [Unknown]
  - Nausea [Unknown]
  - Constipation [Unknown]
  - Ageusia [Unknown]
